FAERS Safety Report 14762970 (Version 2)
Quarter: 2019Q3

REPORT INFORMATION
  Report Type: Spontaneous
  Country: US (occurrence: US)
  Receive Date: 20180416
  Receipt Date: 20190722
  Transmission Date: 20191004
  Serious: No
  Sender: FDA-Public Use
  Company Number: US-BIOGEN-2014BI046699

PATIENT
  Age: 66 Year
  Sex: Female

DRUGS (5)
  1. TECFIDERA [Suspect]
     Active Substance: DIMETHYL FUMARATE
     Indication: MULTIPLE SCLEROSIS
     Dosage: STARTING DOSE
     Route: 050
  2. TECFIDERA [Suspect]
     Active Substance: DIMETHYL FUMARATE
     Dosage: MAINTENANCE DOSE
     Route: 050
     Dates: start: 20140203
  3. TECFIDERA [Suspect]
     Active Substance: DIMETHYL FUMARATE
     Route: 065
     Dates: start: 20131009, end: 20140128
  4. TECFIDERA [Suspect]
     Active Substance: DIMETHYL FUMARATE
     Dosage: MAINTENANCE DOSE
     Route: 050
     Dates: end: 201804
  5. TECFIDERA [Suspect]
     Active Substance: DIMETHYL FUMARATE
     Route: 050

REACTIONS (4)
  - Motor dysfunction [Unknown]
  - Pruritus [Unknown]
  - Skin lesion [Unknown]
  - Flushing [Unknown]

NARRATIVE: CASE EVENT DATE: 201401
